FAERS Safety Report 6651656-4 (Version None)
Quarter: 2010Q1

REPORT INFORMATION
  Report Type: 
  Country: None (occurrence: None)
  Receive Date: 20100309
  Receipt Date: 20091204
  Transmission Date: 20100710
  Serious: No
  Sender: FDA-Public Use
  Company Number: 2009SP040209

PATIENT
  Age: 53 Year
  Sex: Female

DRUGS (5)
  1. SAPHRIS [Suspect]
     Indication: BIPOLAR DISORDER
     Dosage: SL; PO
     Dates: start: 20091204, end: 20091204
  2. SAPHRIS [Suspect]
     Indication: BIPOLAR DISORDER
     Dosage: SL; PO
     Dates: start: 20091204, end: 20091204
  3. SINGULAIR [Concomitant]
  4. ZOLOFT [Concomitant]
  5. ZYRTEC [Concomitant]

REACTIONS (6)
  - BALANCE DISORDER [None]
  - DYSGEUSIA [None]
  - HYPOAESTHESIA ORAL [None]
  - INCORRECT ROUTE OF DRUG ADMINISTRATION [None]
  - ORAL DISCOMFORT [None]
  - SOMNOLENCE [None]
